FAERS Safety Report 23595257 (Version 3)
Quarter: 2024Q2

REPORT INFORMATION
  Report Type: Report from Study
  Country: US (occurrence: US)
  Receive Date: 20240305
  Receipt Date: 20240513
  Transmission Date: 20240715
  Serious: Yes (Other)
  Sender: FDA-Public Use
  Company Number: US-ASTELLAS-2024US006582

PATIENT
  Sex: Male

DRUGS (2)
  1. ENZALUTAMIDE [Suspect]
     Active Substance: ENZALUTAMIDE
     Indication: Product used for unknown indication
     Route: 065
     Dates: start: 20230810, end: 202310
  2. ENZALUTAMIDE [Suspect]
     Active Substance: ENZALUTAMIDE
     Route: 065
     Dates: start: 20240101

REACTIONS (6)
  - Thrombocytopenia [Recovering/Resolving]
  - Epistaxis [Recovering/Resolving]
  - Dizziness [Recovering/Resolving]
  - Drug intolerance [Recovering/Resolving]
  - Hypersensitivity [Unknown]
  - Sinus disorder [Unknown]
